FAERS Safety Report 10362800 (Version 1)
Quarter: 2014Q3

REPORT INFORMATION
  Report Type: Spontaneous
  Country: US (occurrence: None)
  Receive Date: 20140804
  Receipt Date: 20140804
  Transmission Date: 20150326
  Serious: Yes (Hospitalization)
  Sender: FDA-Public Use
  Company Number: None

PATIENT
  Age: 55 Year
  Sex: Female
  Weight: 51.6 kg

DRUGS (1)
  1. PHENTERMINE [Suspect]
     Active Substance: PHENTERMINE
     Indication: OBESITY

REACTIONS (6)
  - Rhabdomyolysis [None]
  - Cardiogenic shock [None]
  - Pneumonitis [None]
  - Renal failure [None]
  - Respiratory failure [None]
  - Sepsis [None]

NARRATIVE: CASE EVENT DATE: 20140718
